FAERS Safety Report 20559898 (Version 3)
Quarter: 2022Q1

REPORT INFORMATION
  Report Type: Report from Study
  Country: EG (occurrence: EG)
  Receive Date: 20220307
  Receipt Date: 20220316
  Transmission Date: 20220423
  Serious: Yes (Other)
  Sender: FDA-Public Use
  Company Number: EG-NOVARTISPH-NVSC2022EG051424

PATIENT
  Age: 22 Year
  Sex: Female

DRUGS (12)
  1. GILENYA [Suspect]
     Active Substance: FINGOLIMOD HYDROCHLORIDE
     Indication: Multiple sclerosis
     Dosage: 0.5 MG, QD
     Route: 048
     Dates: start: 201909
  2. MEGAMOX [Concomitant]
     Indication: Antibiotic prophylaxis
     Dosage: 1 DOSAGE FORM, QD
     Route: 048
     Dates: start: 20220226
  3. AMBIZEM G [Concomitant]
     Indication: Inflammation
     Dosage: 1 DOSAGE FORM, TID
     Route: 048
     Dates: start: 20220226
  4. AMRIZOLE [Concomitant]
     Indication: Sepsis
     Dosage: 1 DOSAGE FORM, BID
     Route: 048
     Dates: start: 20220226
  5. CLINDAMYCIN [Concomitant]
     Active Substance: CLINDAMYCIN
     Indication: Product used for unknown indication
     Dosage: 1 DOSAGE FORM, BID
     Route: 048
     Dates: start: 20220226
  6. VITAMIN D3 [Concomitant]
     Active Substance: CHOLECALCIFEROL
     Indication: Vitamin D deficiency
     Dosage: 1 DOSAGE FORM
     Route: 065
     Dates: start: 20220220
  7. DEVAROL S [Concomitant]
     Indication: Vitamin D deficiency
     Dosage: 1 DOSAGE FORM (AMP), QMO
     Route: 042
     Dates: end: 2021
  8. ETILEFRINE HYDROCHLORIDE [Concomitant]
     Active Substance: ETILEFRINE HYDROCHLORIDE
     Indication: Product used for unknown indication
     Dosage: UNK
     Route: 065
     Dates: start: 202201
  9. .ALPHA.-LIPOIC ACID [Concomitant]
     Active Substance: .ALPHA.-LIPOIC ACID
     Indication: Nerve injury
     Dosage: 1 DOSAGE FORM, QD
     Route: 048
     Dates: start: 2021
  10. CYMBATEX [Concomitant]
     Indication: Nerve injury
     Dosage: 1 DOSAGE FORM, QD
     Route: 048
     Dates: start: 202112
  11. BIOVIT [Concomitant]
     Indication: Nerve injury
     Dosage: UNK
     Route: 042
     Dates: end: 2021
  12. BIOVIT [Concomitant]
     Dosage: UNK
     Route: 042
     Dates: start: 202201

REACTIONS (4)
  - White blood cell count decreased [Recovered/Resolved]
  - Osteonecrosis [Not Recovered/Not Resolved]
  - Vitamin D deficiency [Unknown]
  - Laboratory test abnormal [Unknown]

NARRATIVE: CASE EVENT DATE: 20211027
